FAERS Safety Report 10220009 (Version 1)
Quarter: 2014Q1

REPORT INFORMATION
  Report Type: Spontaneous
  Country: US (occurrence: None)
  Receive Date: 20140306
  Receipt Date: 20140306
  Transmission Date: 20141002
  Serious: Yes (Other)
  Sender: FDA-Public Use
  Company Number: 163-21880-12053410

PATIENT
  Age: 62 Year
  Sex: Female

DRUGS (6)
  1. REVLIMID (LENALIDOMIDE) (10 MILLIGRAM, CAPSULES) [Suspect]
     Indication: PLASMA CELL MYELOMA
     Dosage: 10 MG, 21 IN 28 D, PO
     Route: 048
     Dates: start: 20111214
  2. ADVIL (IBUPROFEN) (TABLETS) [Concomitant]
  3. ASPIRIN EC (ACETYLSALICYLIC ACID) (TABLETS) [Concomitant]
  4. SYNTHROID (LEVOTHYROXINE SODIUM) (TABLETS) [Concomitant]
  5. VITAMIN B-6 (PYRIDOXINE HYDROCHLORIDE) (TABLETS) [Concomitant]
  6. VITAMIN D (ERGOCALCIFEROL) (TABLETS) [Concomitant]

REACTIONS (5)
  - Swelling [None]
  - Insomnia [None]
  - Local swelling [None]
  - Fatigue [None]
  - Nausea [None]
